FAERS Safety Report 4707294-3 (Version None)
Quarter: 2005Q3

REPORT INFORMATION
  Report Type: 
  Country: None (occurrence: None)
  Receive Date: 20050706
  Receipt Date: 20020910
  Transmission Date: 20060218
  Serious: Yes (Hospitalization, Other)
  Sender: FDA-Public Use
  Company Number: US-MERCK-0209USA01001

PATIENT
  Age: 68 Year
  Sex: Male
  Weight: 74 kg

DRUGS (1)
  1. VIOXX [Suspect]
     Indication: SHOULDER PAIN
     Route: 048
     Dates: start: 20000223, end: 20000224

REACTIONS (16)
  - ABSCESS INTESTINAL [None]
  - ACUTE MYOCARDIAL INFARCTION [None]
  - ATHEROSCLEROSIS [None]
  - CARDIAC MURMUR [None]
  - CARDIOMYOPATHY [None]
  - CERVICOBRACHIAL SYNDROME [None]
  - CHRONIC OBSTRUCTIVE PULMONARY DISEASE [None]
  - DIVERTICULAR PERFORATION [None]
  - DIVERTICULITIS [None]
  - DRUG HYPERSENSITIVITY [None]
  - HYPERLIPIDAEMIA [None]
  - INJURY [None]
  - LEUKOCYTOSIS [None]
  - MUSCLE SPASMS [None]
  - PROSTATIC SPECIFIC ANTIGEN INCREASED [None]
  - VIRAL INFECTION [None]
